FAERS Safety Report 6131215-2 (Version None)
Quarter: 2009Q1

REPORT INFORMATION
  Report Type: 
  Country: None (occurrence: None)
  Receive Date: 20090325
  Receipt Date: 20090312
  Transmission Date: 20090719
  Serious: Yes (Other)
  Sender: FDA-Public Use
  Company Number: US-ELI_LILLY_AND_COMPANY-US200903003636

PATIENT
  Sex: Male

DRUGS (2)
  1. PROZAC [Suspect]
     Dosage: 40 MG, DAILY (1/D)
     Route: 065
     Dates: start: 20081001
  2. CLOZAPINE [Concomitant]
     Dosage: 500 MG, UNKNOWN
     Route: 065
     Dates: start: 20081001

REACTIONS (1)
  - RHABDOMYOLYSIS [None]
